FAERS Safety Report 8385938-5 (Version None)
Quarter: 2012Q2

REPORT INFORMATION
  Report Type: 
  Country: None (occurrence: None)
  Receive Date: 20120525
  Receipt Date: 20120514
  Transmission Date: 20120825
  Serious: Yes (Hospitalization)
  Sender: FDA-Public Use
  Company Number: CA-JNJFOC-20120513167

PATIENT
  Sex: Female
  Weight: 111 kg

DRUGS (2)
  1. REMICADE [Suspect]
     Indication: CROHN'S DISEASE
     Dosage: 6TH INFUSION
     Route: 042
     Dates: start: 20120514
  2. REMICADE [Suspect]
     Route: 042

REACTIONS (1)
  - PERIPHERAL NERVE OPERATION [None]
